FAERS Safety Report 5953575-5 (Version None)
Quarter: 2008Q4

REPORT INFORMATION
  Report Type: 
  Country: None (occurrence: None)
  Receive Date: 20081114
  Receipt Date: 20081110
  Transmission Date: 20090506
  Serious: Yes (Death)
  Sender: FDA-Public Use
  Company Number: A0713313A

PATIENT
  Age: 78 Year
  Sex: Female
  Weight: 73.6 kg

DRUGS (1)
  1. AVANDIA [Suspect]
     Dosage: 4MG PER DAY
     Route: 048
     Dates: start: 20010312, end: 20060209

REACTIONS (1)
  - MYOCARDIAL INFARCTION [None]
